FAERS Safety Report 11087924 (Version 9)
Quarter: 2015Q4

REPORT INFORMATION
  Report Type: Report from Study
  Country: SE (occurrence: SE)
  Receive Date: 20150504
  Receipt Date: 20151126
  Transmission Date: 20160304
  Serious: Yes (Hospitalization, Disabling)
  Sender: FDA-Public Use
  Company Number: SE-009507513-1504SWE024218

PATIENT
  Age: 68 Year
  Sex: Female

DRUGS (2)
  1. LOSARTAN POTASSIUM. [Concomitant]
     Active Substance: LOSARTAN POTASSIUM
     Indication: HYPERTENSION
     Dosage: 100 MG, QD
     Route: 048
     Dates: start: 2013
  2. PEMBROLIZUMAB. [Suspect]
     Active Substance: PEMBROLIZUMAB
     Indication: METASTATIC MALIGNANT MELANOMA
     Dosage: 2 MG/KG, Q3W; STRENGTH: 140MG
     Route: 042
     Dates: start: 20150421, end: 20150421

REACTIONS (7)
  - Pyrexia [Not Recovered/Not Resolved]
  - Lip oedema [Recovered/Resolved]
  - Diabetes mellitus [Recovered/Resolved]
  - Neuropathy peripheral [Not Recovered/Not Resolved]
  - Eye oedema [Recovered/Resolved]
  - Myalgia [Not Recovered/Not Resolved]
  - Conjunctivitis [Recovered/Resolved]

NARRATIVE: CASE EVENT DATE: 20150428
